FAERS Safety Report 10558527 (Version 1)
Quarter: 2014Q4

REPORT INFORMATION
  Report Type: Spontaneous
  Country: ES (occurrence: ES)
  Receive Date: 20141031
  Receipt Date: 20141031
  Transmission Date: 20150529
  Serious: Yes (Other)
  Sender: FDA-Public Use
  Company Number: ES-WATSON-2014-23220

PATIENT
  Age: 10 Year
  Sex: Female

DRUGS (1)
  1. TACROLIMUS (UNKNOWN) [Suspect]
     Active Substance: TACROLIMUS
     Indication: LICHEN SCLEROSUS
     Dosage: 0.1% OINTMENT ONCE DAILY
     Route: 061

REACTIONS (2)
  - Bacterial vaginosis [Recovered/Resolved]
  - Bacterial infection [Recovered/Resolved]

NARRATIVE: CASE EVENT DATE: 201404
